FAERS Safety Report 9452995 (Version 1)
Quarter: 2013Q3

REPORT INFORMATION
  Report Type: Spontaneous
  Country: IN (occurrence: IN)
  Receive Date: 20130812
  Receipt Date: 20130812
  Transmission Date: 20140515
  Serious: Yes (Other)
  Sender: FDA-Public Use
  Company Number: IN-GENZYME-THYM-1003973

PATIENT
  Sex: 0

DRUGS (1)
  1. THYMOGLOBULINE [Suspect]
     Indication: BONE MARROW CONDITIONING REGIMEN
     Dosage: 1-1.5 MG/KG, UNK, FOR 3 DAYS
     Route: 065

REACTIONS (1)
  - Transplant rejection [Unknown]
